FAERS Safety Report 10044786 (Version 1)
Quarter: 2014Q1

REPORT INFORMATION
  Report Type: Spontaneous
  Country: CN (occurrence: CN)
  Receive Date: 20140328
  Receipt Date: 20140328
  Transmission Date: 20141002
  Serious: Yes (Other)
  Sender: FDA-Public Use
  Company Number: CN-JNJFOC-20140312172

PATIENT
  Sex: 0

DRUGS (2)
  1. DUROGESIC D-TRANS [Suspect]
     Indication: CANCER PAIN
     Route: 062
  2. FENTANYL CITRATE [Suspect]
     Indication: CANCER PAIN
     Route: 042

REACTIONS (12)
  - Delirium [Unknown]
  - Drug ineffective [Unknown]
  - Nausea [Unknown]
  - Vomiting [Unknown]
  - Dizziness [Unknown]
  - Somnolence [Unknown]
  - Constipation [Unknown]
  - Dysuria [Unknown]
  - Sweat gland disorder [Unknown]
  - Dry mouth [Unknown]
  - Myoclonus [Unknown]
  - Rash [Unknown]
